FAERS Safety Report 14961187 (Version 2)
Quarter: 2018Q2

REPORT INFORMATION
  Report Type: Spontaneous
  Country: US (occurrence: US)
  Receive Date: 20180601
  Receipt Date: 20180616
  Transmission Date: 20180711
  Serious: No
  Sender: FDA-Public Use
  Company Number: US-AMGEN-USASP2018073414

PATIENT
  Sex: Female
  Weight: 60.45 kg

DRUGS (2)
  1. MTX [Suspect]
     Active Substance: METHOTREXATE SODIUM
     Indication: PRODUCT USED FOR UNKNOWN INDICATION
     Dosage: UNK
     Route: 065
  2. ENBREL [Suspect]
     Active Substance: ETANERCEPT
     Indication: RHEUMATOID ARTHRITIS
     Dosage: 50 MG, QWK
     Route: 058

REACTIONS (5)
  - Intentional product misuse [Unknown]
  - Pain in extremity [Unknown]
  - Red blood cell sedimentation rate increased [Unknown]
  - Treatment failure [Unknown]
  - Musculoskeletal stiffness [Not Recovered/Not Resolved]
